FAERS Safety Report 14452407 (Version 1)
Quarter: 2018Q1

REPORT INFORMATION
  Report Type: Spontaneous
  Country: US (occurrence: US)
  Receive Date: 20180129
  Receipt Date: 20180129
  Transmission Date: 20180509
  Serious: No
  Sender: FDA-Public Use
  Company Number: US-PFIZER INC-2018035523

PATIENT
  Age: 2 Year
  Sex: Female

DRUGS (5)
  1. DEXAMETHASONE. [Suspect]
     Active Substance: DEXAMETHASONE
     Indication: STEM CELL TRANSPLANT
     Dosage: UNK, CYCLIC
  2. MITOXANTRONE HCL [Suspect]
     Active Substance: MITOXANTRONE HYDROCHLORIDE
     Indication: STEM CELL TRANSPLANT
     Dosage: UNK UNK, CYCLIC
  3. BORTEZOMIB [Suspect]
     Active Substance: BORTEZOMIB
     Indication: STEM CELL TRANSPLANT
     Dosage: UNK UNK, CYCLIC
  4. PEG/L-ASPARAGINASE [Suspect]
     Active Substance: PEGASPARGASE
     Indication: STEM CELL TRANSPLANT
     Dosage: UNK, CYCLIC
  5. VORINOSTAT [Suspect]
     Active Substance: VORINOSTAT
     Indication: STEM CELL TRANSPLANT
     Dosage: UNK, CYCLIC

REACTIONS (1)
  - Neoplasm progression [Unknown]
